FAERS Safety Report 7283612-X (Version None)
Quarter: 2011Q1

REPORT INFORMATION
  Report Type: 
  Country: None (occurrence: None)
  Receive Date: 20110125
  Receipt Date: 20110110
  Transmission Date: 20110831
  Serious: Yes (Death)
  Sender: FDA-Public Use
  Company Number: 025456

PATIENT
  Age: 27 Year
  Sex: Male

DRUGS (5)
  1. HEROIN [Suspect]
  2. ALPRAZOLAM [Suspect]
  3. ACETAMINOPHEN W/DIPHENHYDRAMINE HYDROCHLORIDE [Suspect]
  4. COCAINE [Suspect]
  5. DIAZEPAM [Suspect]

REACTIONS (2)
  - CARDIAC ARREST [None]
  - RESPIRATORY ARREST [None]
